FAERS Safety Report 19495733 (Version 1)
Quarter: 2021Q3

REPORT INFORMATION
  Report Type: Spontaneous
  Country: US (occurrence: US)
  Receive Date: 20210706
  Receipt Date: 20210706
  Transmission Date: 20211014
  Serious: No
  Sender: FDA-Public Use
  Company Number: US-JNJFOC-20210706762

PATIENT
  Age: 29 Year
  Sex: Female
  Weight: 66.28 kg

DRUGS (3)
  1. ATIVAN [Concomitant]
     Active Substance: LORAZEPAM
  2. GABAPENTIN. [Concomitant]
     Active Substance: GABAPENTIN
  3. PONVORY [Suspect]
     Active Substance: PONESIMOD
     Indication: MULTIPLE SCLEROSIS
     Route: 065
     Dates: start: 202106

REACTIONS (4)
  - Constipation [Unknown]
  - Malaise [Unknown]
  - Eructation [Unknown]
  - Confusional state [Unknown]

NARRATIVE: CASE EVENT DATE: 20210702
